FAERS Safety Report 5018544-0 (Version None)
Quarter: 2006Q2

REPORT INFORMATION
  Report Type: 
  Country: None (occurrence: None)
  Receive Date: 20060605
  Receipt Date: 20060522
  Transmission Date: 20061013
  Serious: Yes (Hospitalization)
  Sender: FDA-Public Use
  Company Number: TR-MERCK-0605TUR00001

PATIENT
  Age: 5 Year
  Sex: Male

DRUGS (3)
  1. SINGULAIR [Suspect]
     Indication: ASTHMA
     Route: 048
  2. ALBUTEROL SULFATE [Suspect]
     Indication: ASTHMA
     Route: 048
  3. ALBUTEROL SULFATE [Suspect]
     Route: 048

REACTIONS (1)
  - DRUG INEFFECTIVE [None]
